FAERS Safety Report 4452718-2 (Version None)
Quarter: 2004Q3

REPORT INFORMATION
  Report Type: 
  Country: None (occurrence: None)
  Receive Date: 20040813
  Receipt Date: 20040623
  Transmission Date: 20050211
  Serious: No
  Sender: FDA-Public Use
  Company Number: S04-USA-03715-01

PATIENT
  Age: 80 Year
  Sex: Female

DRUGS (11)
  1. NAMENDA [Suspect]
     Indication: DEMENTIA
     Dosage: 5 MG QD PO
     Route: 048
     Dates: start: 20040604, end: 20040610
  2. NAMENDA [Suspect]
     Indication: DEMENTIA
     Dosage: 10 MG QD PO
     Route: 048
     Dates: start: 20040611, end: 20040617
  3. NAMENDA [Suspect]
     Indication: DEMENTIA
     Dosage: 15 MG QD PO
     Route: 048
     Dates: start: 20040618
  4. NEURONTIN [Concomitant]
  5. LASIX [Concomitant]
  6. DIGOXIN [Concomitant]
  7. ACCUPRIL [Concomitant]
  8. SEROQUEL [Concomitant]
  9. COREG [Concomitant]
  10. HYDRA JOINT [Concomitant]
  11. MULTI-VITAMIN [Concomitant]

REACTIONS (1)
  - DYSKINESIA [None]
